FAERS Safety Report 9821393 (Version 2)
Quarter: 2014Q1

REPORT INFORMATION
  Report Type: Spontaneous
  Country: US (occurrence: None)
  Receive Date: 20140114
  Receipt Date: 20140128
  Transmission Date: 20141002
  Serious: Yes (Hospitalization)
  Sender: FDA-Public Use
  Company Number: 152084

PATIENT
  Age: 67 Year
  Sex: Male
  Weight: 74 kg

DRUGS (1)
  1. LEUCOVORIN CALCIUM [Suspect]
     Indication: COLON CANCER
     Dates: start: 20130307, end: 20131003

REACTIONS (8)
  - Jaundice cholestatic [None]
  - Metastases to lung [None]
  - Metastases to liver [None]
  - Malignant neoplasm progression [None]
  - Urticaria [None]
  - Pancreatitis [None]
  - Post procedural complication [None]
  - Disease progression [None]
